FAERS Safety Report 4979554-2 (Version None)
Quarter: 2006Q2

REPORT INFORMATION
  Report Type: 
  Country: None (occurrence: None)
  Receive Date: 20060418
  Receipt Date: 20060407
  Transmission Date: 20061013
  Serious: Yes (Other)
  Sender: FDA-Public Use
  Company Number: 2006047982

PATIENT
  Age: 41 Year
  Sex: Female
  Weight: 69.5 kg

DRUGS (2)
  1. NICOTINE [Suspect]
     Indication: EX-SMOKER
     Dosage: ONE DAILY, TRANSDERMAL
     Route: 062
     Dates: start: 20060313, end: 20060328
  2. BUPROPION HCL [Concomitant]

REACTIONS (1)
  - CHEST DISCOMFORT [None]
